FAERS Safety Report 20331650 (Version 1)
Quarter: 2022Q1

REPORT INFORMATION
  Report Type: Spontaneous
  Country: US (occurrence: US)
  Receive Date: 20220113
  Receipt Date: 20220113
  Transmission Date: 20220423
  Serious: Yes (Death)
  Sender: FDA-Public Use
  Company Number: US-BAYER-2022A001947

PATIENT
  Age: 24 Year
  Sex: Male

DRUGS (3)
  1. CHLORPHENIRAMINE MALEATE [Suspect]
     Active Substance: CHLORPHENIRAMINE MALEATE
  2. FENTANYL [Suspect]
     Active Substance: FENTANYL
  3. DEXTROMETHORPHAN [Suspect]
     Active Substance: DEXTROMETHORPHAN

REACTIONS (2)
  - Toxicity to various agents [Fatal]
  - Drug abuse [Fatal]
